FAERS Safety Report 16788420 (Version 12)
Quarter: 2022Q4

REPORT INFORMATION
  Report Type: Report from Study
  Country: DE (occurrence: DE)
  Receive Date: 20190910
  Receipt Date: 20221025
  Transmission Date: 20230112
  Serious: Yes (Life-Threatening, Hospitalization)
  Sender: FDA-Public Use
  Company Number: DE-ROCHE-2395875

PATIENT
  Age: 36 Year
  Sex: Female
  Weight: 53 kg

DRUGS (23)
  1. ATEZOLIZUMAB [Suspect]
     Active Substance: ATEZOLIZUMAB
     Indication: Triple negative breast cancer
     Dosage: MOST RECENT DOSE OF BLINDED ATEZOLIZUMAB PRIOR TO AE ONSET: 21/AUG/2019?LAST DOSE OF BLINDED ATEZOLI
     Route: 041
     Dates: start: 20190801
  2. CARBOPLATIN [Suspect]
     Active Substance: CARBOPLATIN
     Indication: Triple negative breast cancer
     Dosage: TARGET AREA UNDER THE CURVE (AUC) 2 MG/ML/MIN?MOST RECENT DOSE OF CARBOPLATIN PRIOR TO AE ONSET: 21/
     Route: 042
     Dates: start: 20190801
  3. GEMCITABINE [Suspect]
     Active Substance: GEMCITABINE
     Indication: Triple negative breast cancer
     Dosage: MOST RECENT DOSE OF GEMCITABINE PRIOR TO AE ONSET: 21/AUG/2019
     Route: 042
     Dates: start: 20190801
  4. ONDANSETRON [Suspect]
     Active Substance: ONDANSETRON
     Indication: Product used for unknown indication
     Dosage: MOST RECENT DOSE ON 23/AUG/2019
     Route: 065
     Dates: start: 20190808
  5. GRANISETRON HYDROCHLORIDE [Suspect]
     Active Substance: GRANISETRON HYDROCHLORIDE
     Indication: Product used for unknown indication
     Route: 065
     Dates: start: 20190801, end: 20190821
  6. GRANISETRON HYDROCHLORIDE [Suspect]
     Active Substance: GRANISETRON HYDROCHLORIDE
     Route: 065
     Dates: start: 20190911
  7. DICLOFENAC [Concomitant]
     Active Substance: DICLOFENAC
     Indication: Prophylaxis
     Dates: start: 20190726
  8. ONDANSETRON [Concomitant]
     Active Substance: ONDANSETRON
     Indication: Prophylaxis
     Dates: start: 20190808, end: 20190823
  9. LORAZEPAM [Concomitant]
     Active Substance: LORAZEPAM
     Dates: start: 20190726, end: 20190801
  10. DIMENHYDRINATE [Concomitant]
     Active Substance: DIMENHYDRINATE
     Indication: Nausea
     Dates: start: 20191030
  11. ALBUMIN HUMAN [Concomitant]
     Active Substance: ALBUMIN HUMAN
     Indication: Prophylaxis
     Dosage: UNK
     Route: 065
     Dates: start: 20190808
  12. ALBUMIN HUMAN [Concomitant]
     Active Substance: ALBUMIN HUMAN
     Indication: Oedema
     Dates: start: 20190821, end: 20190821
  13. ALBUMIN HUMAN [Concomitant]
     Active Substance: ALBUMIN HUMAN
     Dates: start: 20190918, end: 20190918
  14. ALBUMIN HUMAN [Concomitant]
     Active Substance: ALBUMIN HUMAN
     Dosage: 20% 100 ML
     Dates: start: 20191002, end: 20191002
  15. CHOLECALCIFEROL [Concomitant]
     Active Substance: CHOLECALCIFEROL
     Indication: Prophylaxis
     Dates: start: 20190927
  16. PANTOZOL [Concomitant]
     Active Substance: PANTOPRAZOLE SODIUM
     Indication: Prophylaxis
     Dosage: UNK
     Route: 065
     Dates: start: 20190808
  17. EMEND [Concomitant]
     Active Substance: APREPITANT
     Indication: Prophylaxis
     Dosage: UNK
     Route: 065
     Dates: start: 20190808
  18. MCP [Concomitant]
     Active Substance: METOCLOPRAMIDE HYDROCHLORIDE
     Indication: Nausea
     Dates: start: 20191002
  19. DEXAMETHASONE [Concomitant]
     Active Substance: DEXAMETHASONE
     Indication: Prophylaxis
     Route: 065
     Dates: start: 20190801, end: 20190808
  20. XGEVA [Concomitant]
     Active Substance: DENOSUMAB
     Dates: start: 20191002
  21. OXAZEPAM [Concomitant]
     Active Substance: OXAZEPAM
     Dates: start: 20190801
  22. GRANISETRON HYDROCHLORIDE [Concomitant]
     Active Substance: GRANISETRON HYDROCHLORIDE
     Indication: Prophylaxis
     Dates: start: 20190801, end: 20190821
  23. GRANISETRON HYDROCHLORIDE [Concomitant]
     Active Substance: GRANISETRON HYDROCHLORIDE
     Dates: start: 20190911

REACTIONS (1)
  - Torsade de pointes [Recovered/Resolved]

NARRATIVE: CASE EVENT DATE: 20190823
